FAERS Safety Report 25336872 (Version 5)
Quarter: 2025Q3

REPORT INFORMATION
  Report Type: Spontaneous
  Country: US (occurrence: US)
  Receive Date: 20250520
  Receipt Date: 20250702
  Transmission Date: 20251020
  Serious: No
  Sender: PFIZER
  Company Number: US-PFIZER INC-202500102425

PATIENT
  Age: 13 Year
  Sex: Male
  Weight: 61.224 kg

DRUGS (1)
  1. GENOTROPIN [Suspect]
     Active Substance: SOMATROPIN
     Indication: Radiochemotherapy
     Dosage: 1.4 MG, DAILY
     Dates: start: 20250429

REACTIONS (3)
  - Discomfort [Unknown]
  - Device leakage [Unknown]
  - Off label use [Unknown]

NARRATIVE: CASE EVENT DATE: 20250101
